FAERS Safety Report 9379957 (Version 2)
Quarter: 2013Q3

REPORT INFORMATION
  Report Type: Spontaneous
  Country: JP (occurrence: JP)
  Receive Date: 20130702
  Receipt Date: 20130708
  Transmission Date: 20140515
  Serious: Yes (Hospitalization, Other)
  Sender: FDA-Public Use
  Company Number: PHHY2013JP067303

PATIENT
  Age: 64 Year
  Sex: Female

DRUGS (2)
  1. PAMIDRONATE DISODIUM [Suspect]
     Indication: BREAST CANCER
     Dosage: UNK UKN, UNK
     Route: 041
     Dates: start: 200605, end: 200806
  2. ZOLEDRONIC ACID [Suspect]
     Indication: BREAST CANCER
     Dosage: UNK UKN, UNK
     Route: 041
     Dates: start: 200807

REACTIONS (9)
  - Swelling [Not Recovered/Not Resolved]
  - Purulent discharge [Unknown]
  - Poor personal hygiene [Unknown]
  - Exposed bone in jaw [Unknown]
  - Trismus [Unknown]
  - Malnutrition [Unknown]
  - Femur fracture [Unknown]
  - Gas gangrene [Unknown]
  - Osteomyelitis [Unknown]
